FAERS Safety Report 7113418-3 (Version None)
Quarter: 2010Q4

REPORT INFORMATION
  Report Type: 
  Country: None (occurrence: None)
  Receive Date: 20101119
  Receipt Date: 20100922
  Transmission Date: 20110411
  Serious: No
  Sender: FDA-Public Use
  Company Number: A0882633A

PATIENT
  Age: 61 Year
  Sex: Female

DRUGS (2)
  1. ARZERRA [Suspect]
     Route: 042
  2. ACYCLOVIR [Concomitant]

REACTIONS (2)
  - FATIGUE [None]
  - VIRAL UPPER RESPIRATORY TRACT INFECTION [None]
